FAERS Safety Report 15989910 (Version 1)
Quarter: 2019Q1

REPORT INFORMATION
  Report Type: Spontaneous
  Country: US (occurrence: US)
  Receive Date: 20190221
  Receipt Date: 20190221
  Transmission Date: 20190418
  Serious: No
  Sender: FDA-Public Use
  Company Number: US-TEVA-2019-US-1005220

PATIENT
  Sex: Male

DRUGS (2)
  1. NEFAZODONE HYDROCHLORIDE TABLETS [Suspect]
     Active Substance: NEFAZODONE HYDROCHLORIDE
     Indication: GENERALISED ANXIETY DISORDER
     Dosage: 500 MILLIGRAM DAILY;
     Route: 065
  2. LIPITOR [Interacting]
     Active Substance: ATORVASTATIN CALCIUM
     Route: 065

REACTIONS (5)
  - Pain [Unknown]
  - Drug interaction [Unknown]
  - Myalgia [Unknown]
  - Arthralgia [Unknown]
  - Pain in extremity [Unknown]
